FAERS Safety Report 16689230 (Version 3)
Quarter: 2019Q3

REPORT INFORMATION
  Report Type: Report from Study
  Country: EG (occurrence: EG)
  Receive Date: 20190809
  Receipt Date: 20190827
  Transmission Date: 20191004
  Serious: Yes (Life-Threatening, Hospitalization)
  Sender: FDA-Public Use
  Company Number: EG-NOVOPROD-675387

PATIENT
  Age: 13 Year
  Sex: Female
  Weight: 30 kg

DRUGS (4)
  1. ACTRAPID [Suspect]
     Active Substance: INSULIN HUMAN
     Dosage: 4 IU BEFOR EACH MEAL
     Route: 058
  2. INSULATARD NPH HUMAN [Suspect]
     Active Substance: INSULIN HUMAN
     Dosage: 7 IU, BID (7 IU BEFORE BREAKFAST AND 7 IU BEFORE DINNER)
     Route: 058
  3. INSULATARD NPH HUMAN [Suspect]
     Active Substance: INSULIN HUMAN
     Indication: TYPE 1 DIABETES MELLITUS
     Dosage: 6 IU, BID (6 IU AT BREAKFAT AND 6 IU AT LUNCH), STARTED 2 YEARS AGO
     Route: 058
  4. ACTRAPID [Suspect]
     Active Substance: INSULIN HUMAN
     Indication: TYPE 1 DIABETES MELLITUS
     Dosage: 2 IU BEFOR EACH MEAL
     Route: 058

REACTIONS (3)
  - Diabetic hyperglycaemic coma [Recovered/Resolved]
  - Drug ineffective [Unknown]
  - Product administered at inappropriate site [Unknown]

NARRATIVE: CASE EVENT DATE: 20190718
